FAERS Safety Report 23576274 (Version 1)
Quarter: 2024Q1

REPORT INFORMATION
  Report Type: Spontaneous
  Country: GB (occurrence: GB)
  Receive Date: 20240228
  Receipt Date: 20240228
  Transmission Date: 20240409
  Serious: Yes (Other)
  Sender: FDA-Public Use
  Company Number: GB-MHRA-MED-202402220422080290-DZBFY

PATIENT
  Age: 67 Year
  Sex: Female

DRUGS (1)
  1. CLINIMIX E [Suspect]
     Active Substance: ALANINE\AMINO ACIDS\ARGININE\CALCIUM CHLORIDE\DEXTROSE\GLYCINE\HISTIDINE\ISOLEUCINE\LEUCINE\LYSINE\M
     Dosage: DOSAGE TEXT: 91 MLS AN HOUR-12 HOURS
     Route: 065
     Dates: start: 20240221, end: 20240222

REACTIONS (3)
  - Hypothermia [Recovering/Resolving]
  - Medication error [Unknown]
  - Chills [Recovering/Resolving]

NARRATIVE: CASE EVENT DATE: 20240222
